FAERS Safety Report 7864734-9 (Version None)
Quarter: 2011Q4

REPORT INFORMATION
  Report Type: 
  Country: None (occurrence: None)
  Receive Date: 20111028
  Receipt Date: 20111017
  Transmission Date: 20120403
  Serious: Yes (Other)
  Sender: FDA-Public Use
  Company Number: CA-ELI_LILLY_AND_COMPANY-CA201110004011

PATIENT
  Sex: Male

DRUGS (3)
  1. LORAZEPAM [Concomitant]
  2. LITHIUM CITRATE [Concomitant]
  3. ZYPREXA [Suspect]
     Dosage: 5 MG, EACH EVENING
     Dates: start: 20020318

REACTIONS (8)
  - SKIN STRIAE [None]
  - DIABETES MELLITUS [None]
  - INCREASED APPETITE [None]
  - TESTIS CANCER [None]
  - THIRST [None]
  - POLLAKIURIA [None]
  - WEIGHT INCREASED [None]
  - FATIGUE [None]
